FAERS Safety Report 11133267 (Version 1)
Quarter: 2015Q2

REPORT INFORMATION
  Report Type: Spontaneous
  Country: IT (occurrence: IT)
  Receive Date: 20150522
  Receipt Date: 20150522
  Transmission Date: 20150821
  Serious: Yes (Hospitalization, Other)
  Sender: FDA-Public Use
  Company Number: IT-ASTRAZENECA-2015SE45610

PATIENT
  Age: 30326 Day
  Sex: Male

DRUGS (7)
  1. EFFEXOR [Suspect]
     Active Substance: VENLAFAXINE HYDROCHLORIDE
     Route: 048
     Dates: start: 20120724
  2. OMEPRAZEN [Suspect]
     Active Substance: OMEPRAZOLE
     Route: 048
     Dates: start: 20120809
  3. ASCRIPTIN [Concomitant]
     Active Substance: ASPIRIN
  4. PROVISACOR [Concomitant]
     Active Substance: ROSUVASTATIN
  5. GAVISCON [Concomitant]
     Active Substance: ALUMINUM HYDROXIDE\MAGNESIUM CARBONATE
     Dosage: 1000MG / 10ML + 200MG / 10ML
     Route: 048
  6. LEVOPRAID [Concomitant]
     Active Substance: SULPIRIDE
  7. PREFOLIC [Concomitant]
     Active Substance: LEUCOVORIN CALCIUM

REACTIONS (4)
  - Cachexia [Recovered/Resolved]
  - Cough [Recovered/Resolved]
  - Hyponatraemia [Recovered/Resolved]
  - Dehydration [Recovered/Resolved]

NARRATIVE: CASE EVENT DATE: 20130408
